FAERS Safety Report 12089176 (Version 1)
Quarter: 2016Q1

REPORT INFORMATION
  Report Type: Spontaneous
  Country: US (occurrence: None)
  Receive Date: 20160217
  Receipt Date: 20160217
  Transmission Date: 20160526
  Serious: No
  Sender: FDA-Public Use
  Company Number: None

PATIENT
  Age: 58 Year
  Sex: Male

DRUGS (2)
  1. GLUCOPHAGE [Suspect]
     Active Substance: METFORMIN HYDROCHLORIDE
  2. AMARYL [Suspect]
     Active Substance: GLIMEPIRIDE

REACTIONS (4)
  - Weight decreased [None]
  - Myocardial infarction [None]
  - Glycosylated haemoglobin increased [None]
  - Amnesia [None]
